FAERS Safety Report 8526660 (Version 2)
Quarter: 2013Q1

REPORT INFORMATION
  Report Type: Report from Study
  Country: ES (occurrence: ES)
  Receive Date: 20120423
  Receipt Date: 20130301
  Transmission Date: 20140127
  Serious: Yes (Death, Hospitalization)
  Sender: FDA-Public Use
  Company Number: ES-PFIZER INC-2012010015

PATIENT
  Age: 63 Year
  Sex: Male
  Weight: 61 kg

DRUGS (7)
  1. AXITINIB [Suspect]
     Dosage: 5 MG, 2X/DAY
     Dates: start: 20120102, end: 20120112
  2. SANDOSTATIN LAR [Suspect]
     Dosage: 30 MG, CYCLIC, EVERY 28 DAYS
     Dates: start: 20091022, end: 20120102
  3. COZAAR [Concomitant]
     Indication: HYPERTENSION
     Dosage: 50 MG, UNK
     Route: 048
     Dates: start: 20110819, end: 20120110
  4. BISOPROLOL [Concomitant]
     Indication: HYPERTENSION
     Dosage: 2.5 MG, 2X/DAY
     Route: 048
  5. OMEPRAZOLE [Concomitant]
     Indication: PROPHYLAXIS AGAINST GASTROINTESTINAL ULCER
     Dosage: 20 (UNKNOWN UNITS)
     Route: 048
  6. ATORVASTATIN [Concomitant]
     Indication: HYPERCHOLESTEROLAEMIA
     Dosage: 10 (UNKNOWN UNITS)
     Route: 048
  7. ZOLPIDEM [Concomitant]
     Indication: INSOMNIA
     Dosage: 10 (UNKNOWN UNITS)
     Route: 048
     Dates: start: 20120112

REACTIONS (1)
  - Encephalopathy [Fatal]
